FAERS Safety Report 9259349 (Version 2)
Quarter: 2017Q4

REPORT INFORMATION
  Report Type: Report from Study
  Country: DE (occurrence: DE)
  Receive Date: 20130427
  Receipt Date: 20171129
  Transmission Date: 20180321
  Serious: Yes (Death, Other)
  Sender: FDA-Public Use
  Company Number: DE-ROCHE-1218843

PATIENT

DRUGS (10)
  1. TRETINOIN. [Suspect]
     Active Substance: TRETINOIN
     Indication: ACUTE PROMYELOCYTIC LEUKAEMIA
     Dosage: OVER 5 DAYS
     Route: 065
  2. DAUNORUBICIN [Suspect]
     Active Substance: DAUNORUBICIN
     Indication: ACUTE PROMYELOCYTIC LEUKAEMIA
     Dosage: DAYS 3-5
     Route: 042
  3. COTRIMOXAZOL [Concomitant]
     Active Substance: SULFAMETHOXAZOLE\TRIMETHOPRIM
  4. CYTARABINE. [Suspect]
     Active Substance: CYTARABINE
     Indication: ACUTE PROMYELOCYTIC LEUKAEMIA
     Dosage: CONTINOUS I.V. DAY 1 AND 2
     Route: 042
  5. COLISTIN SULFATE [Concomitant]
     Active Substance: COLISTIN SULFATE
  6. MITOXANTRONE [Suspect]
     Active Substance: MITOXANTRONE HYDROCHLORIDE
     Indication: ACUTE PROMYELOCYTIC LEUKAEMIA
     Dosage: DAYS 3 TO 5
     Route: 042
  7. AMPHOTERICIN B. [Concomitant]
     Active Substance: AMPHOTERICIN B
  8. 6-THIOGUANINE [Suspect]
     Active Substance: THIOGUANINE
     Indication: ACUTE PROMYELOCYTIC LEUKAEMIA
     Dosage: DAY 3 TO 9
     Route: 048
  9. CYCLOPHOSPHAMIDE. [Suspect]
     Active Substance: CYCLOPHOSPHAMIDE
     Indication: ACUTE PROMYELOCYTIC LEUKAEMIA
     Dosage: 1 G/M2
     Route: 042
  10. CYTARABINE. [Suspect]
     Active Substance: CYTARABINE
     Dosage: DAY 3 TO 8
     Route: 042

REACTIONS (16)
  - Haemorrhage [Unknown]
  - Vena cava thrombosis [Fatal]
  - Mucosal inflammation [Unknown]
  - Diarrhoea [Unknown]
  - Acute promyelocytic leukaemia differentiation syndrome [Unknown]
  - Pancreatic carcinoma [Unknown]
  - Cytopenia [Recovered/Resolved]
  - Pyrexia [Unknown]
  - Acute myeloid leukaemia [Unknown]
  - Infection [Fatal]
  - Cerebral haemorrhage [Fatal]
  - Pulmonary embolism [Fatal]
  - Cardiac failure [Unknown]
  - Hepatotoxicity [Unknown]
  - Cardiotoxicity [Unknown]
  - Prostate cancer [Unknown]
